FAERS Safety Report 25224531 (Version 1)
Quarter: 2025Q2

REPORT INFORMATION
  Report Type: Spontaneous
  Country: DE (occurrence: DE)
  Receive Date: 20250422
  Receipt Date: 20250422
  Transmission Date: 20250717
  Serious: Yes (Hospitalization)
  Sender: SCIEGEN PHARMACEUTICALS INC
  Company Number: DE-SCIEGENP-2025SCLIT00062

PATIENT
  Age: 39 Year
  Sex: Male

DRUGS (3)
  1. GABAPENTIN [Suspect]
     Active Substance: GABAPENTIN
     Indication: Neuralgia
     Route: 065
  2. DIPYRONE [Concomitant]
     Active Substance: DIPYRONE
     Indication: Product used for unknown indication
     Route: 065
  3. FERROUS GLYCINE SULFATE [Concomitant]
     Active Substance: FERROUS GLYCINE SULFATE
     Indication: Product used for unknown indication
     Route: 065

REACTIONS (2)
  - Anal haemorrhage [Recovered/Resolved]
  - Mucosal haemorrhage [Recovered/Resolved]
